FAERS Safety Report 6651305-5 (Version None)
Quarter: 2010Q1

REPORT INFORMATION
  Report Type: 
  Country: None (occurrence: None)
  Receive Date: 20100325
  Receipt Date: 20100203
  Transmission Date: 20100710
  Serious: Yes (Other)
  Sender: FDA-Public Use
  Company Number: AU-SANOFI-AVENTIS-2010SA014742

PATIENT
  Sex: Female

DRUGS (3)
  1. STILNOX [Suspect]
     Indication: INTENTIONAL DRUG MISUSE
     Route: 048
     Dates: start: 20071201, end: 20071201
  2. ROHYPNOL [Suspect]
     Indication: INTENTIONAL DRUG MISUSE
     Route: 048
     Dates: start: 20071201, end: 20071201
  3. ALCOHOL [Suspect]
     Indication: ALCOHOL USE
     Route: 048
     Dates: start: 20071201, end: 20071201

REACTIONS (3)
  - INTENTIONAL DRUG MISUSE [None]
  - LOSS OF CONSCIOUSNESS [None]
  - VISION BLURRED [None]
